FAERS Safety Report 21794171 (Version 2)
Quarter: 2023Q1

REPORT INFORMATION
  Report Type: Spontaneous
  Country: FR (occurrence: FR)
  Receive Date: 20221229
  Receipt Date: 20230125
  Transmission Date: 20230417
  Serious: Yes (Death, Life-Threatening, Other)
  Sender: FDA-Public Use
  Company Number: None

PATIENT
  Age: 49 Year
  Sex: Female
  Weight: 83 kg

DRUGS (1)
  1. TRODELVY [Suspect]
     Active Substance: SACITUZUMAB GOVITECAN-HZIY
     Indication: Breast cancer
     Dosage: 900MG (10 MG/KG)
     Route: 042
     Dates: start: 20221121, end: 20221121

REACTIONS (6)
  - Anaemia [Recovered/Resolved]
  - Multiple organ dysfunction syndrome [Fatal]
  - Thrombocytopenia [Recovered/Resolved]
  - Septic shock [Fatal]
  - Febrile neutropenia [Recovered/Resolved]
  - Diarrhoea [Recovered/Resolved]

NARRATIVE: CASE EVENT DATE: 20221126
